FAERS Safety Report 15273174 (Version 3)
Quarter: 2022Q4

REPORT INFORMATION
  Report Type: Spontaneous
  Country: IN (occurrence: IN)
  Receive Date: 20180813
  Receipt Date: 20221128
  Transmission Date: 20230112
  Serious: Yes (Life-Threatening, Hospitalization, Other)
  Sender: FDA-Public Use
  Company Number: IN-SA-2018SA203638

PATIENT
  Age: 60 Year
  Sex: Female

DRUGS (18)
  1. PIRACETAM [Interacting]
     Active Substance: PIRACETAM
     Indication: Memory impairment
     Dosage: 800 MG, TID
     Route: 065
     Dates: start: 2002, end: 2016
  2. PIRACETAM [Interacting]
     Active Substance: PIRACETAM
     Dosage: 800 MG, TID
     Route: 065
     Dates: start: 201603
  3. CITICOLINE SODIUM [Interacting]
     Active Substance: CITICOLINE SODIUM
     Indication: Memory impairment
     Dosage: 500 MG, QD
     Route: 065
     Dates: start: 2002, end: 2016
  4. CITICOLINE SODIUM [Interacting]
     Active Substance: CITICOLINE SODIUM
     Dosage: 500 MG, QD
     Route: 065
     Dates: start: 201603
  5. RISPERIDONE [Interacting]
     Active Substance: RISPERIDONE
     Indication: Schizophrenia
     Dosage: 0.5 MG, QD (RISPERIDONE FREE PERIOD OF APPROXIMATELY 11 MONTHS IN 2002-2003 AND ANOTHER
     Route: 065
     Dates: start: 2002, end: 2003
  6. RISPERIDONE [Interacting]
     Active Substance: RISPERIDONE
     Dosage: UNKRISPERIDONE FREE PERIOD OF APPROXIMATELY 11 MONTHS IN 2002-2003 AND ANOTHER
     Route: 065
     Dates: start: 2014, end: 2016
  7. RISPERIDONE [Interacting]
     Active Substance: RISPERIDONE
     Dosage: 0.5 MILLIGRAM, QD (FROM 14 YEARS FRAOM MAY -2015AT 0.05 MG/DAY)
     Route: 065
     Dates: start: 201505
  8. DONEPEZIL [Interacting]
     Active Substance: DONEPEZIL
     Indication: Memory impairment
     Dosage: 10 MG, QD
     Route: 065
     Dates: start: 2002, end: 2014
  9. DONEPEZIL [Interacting]
     Active Substance: DONEPEZIL
     Dosage: 10 MG, QD
     Route: 065
     Dates: start: 201603
  10. OLMESARTAN MEDOXOMIL [Suspect]
     Active Substance: OLMESARTAN MEDOXOMIL
     Indication: Product used for unknown indication
     Dosage: 20 MG, QD
     Route: 065
     Dates: start: 2002
  11. VALPROIC ACID [Suspect]
     Active Substance: VALPROIC ACID
     Indication: Seizure
     Dosage: UNK
     Route: 065
     Dates: start: 2002
  12. OXCARBAZEPINE [Interacting]
     Active Substance: OXCARBAZEPINE
     Indication: Generalised tonic-clonic seizure
     Dosage: 600 MG, BID
     Route: 065
     Dates: start: 2002
  13. CLOBAZAM [Suspect]
     Active Substance: CLOBAZAM
     Indication: Generalised tonic-clonic seizure
     Dosage: 10 MG, QD
     Route: 065
     Dates: start: 2002
  14. CLOBAZAM [Suspect]
     Active Substance: CLOBAZAM
     Indication: Seizure
     Dosage: 10 MG, QD
     Route: 065
     Dates: start: 201209
  15. OLANZAPINE [Concomitant]
     Active Substance: OLANZAPINE
     Indication: Product used for unknown indication
     Dosage: UNK
     Route: 065
  16. OXCARBAZEPINE [Concomitant]
     Active Substance: OXCARBAZEPINE
     Indication: Seizure
     Dosage: 600 MILLIGRAM (1 DOSAGE IN 5 DAY)
     Route: 065
     Dates: start: 201310
  17. OLMESARTAN [Concomitant]
     Active Substance: OLMESARTAN
     Indication: Hypertension
     Dosage: 20 MILLIGRAM, QD
     Route: 065
     Dates: start: 201603
  18. VALPROATE [Concomitant]
     Active Substance: VALPROIC ACID
     Indication: Seizure
     Dosage: UNK
     Route: 065

REACTIONS (11)
  - Neuroleptic malignant syndrome [Recovered/Resolved]
  - Muscle rigidity [Recovering/Resolving]
  - Dysphagia [Recovering/Resolving]
  - Agitation [Recovering/Resolving]
  - Mental status changes [Recovering/Resolving]
  - Hypokinesia [Recovering/Resolving]
  - Tremor [Recovering/Resolving]
  - Pyrexia [Recovering/Resolving]
  - Speech disorder [Recovering/Resolving]
  - Urinary incontinence [Recovering/Resolving]
  - Drug interaction [Recovered/Resolved]

NARRATIVE: CASE EVENT DATE: 20160101
